FAERS Safety Report 9207507 (Version 1)
Quarter: 2013Q2

REPORT INFORMATION
  Report Type: Report from Study
  Country: GR (occurrence: GR)
  Receive Date: 20130403
  Receipt Date: 20130403
  Transmission Date: 20140414
  Serious: Yes (Other)
  Sender: FDA-Public Use
  Company Number: GR-ROCHE-1209411

PATIENT
  Sex: 0

DRUGS (4)
  1. BEVACIZUMAB [Suspect]
     Indication: NON-SMALL CELL LUNG CANCER
     Dosage: EVERY 28 DAYS AND CONTINUED WITH BEVACIZUMAB EVERY 21 DAYS UNTIL DISEASE PROGRESSION
     Route: 042
  2. ERLOTINIB [Suspect]
     Indication: NON-SMALL CELL LUNG CANCER
     Dosage: 150 MG/DL DAILY
     Route: 065
  3. CARBOPLATIN [Suspect]
     Indication: NON-SMALL CELL LUNG CANCER
     Route: 065
  4. DOCETAXEL [Suspect]
     Indication: NON-SMALL CELL LUNG CANCER
     Route: 065

REACTIONS (11)
  - Pulmonary embolism [Unknown]
  - Hypertension [Unknown]
  - Anaemia [Unknown]
  - Neutropenia [Unknown]
  - Thrombocytopenia [Unknown]
  - Rash [Unknown]
  - Diarrhoea [Unknown]
  - Haemoptysis [Unknown]
  - Proteinuria [Unknown]
  - Renal failure [Unknown]
  - Cardiotoxicity [Unknown]
